FAERS Safety Report 9306179 (Version 1)
Quarter: 2013Q2

REPORT INFORMATION
  Report Type: Spontaneous
  Country: US (occurrence: None)
  Receive Date: 20130516
  Receipt Date: 20130516
  Transmission Date: 20140414
  Serious: Yes (Other)
  Sender: FDA-Public Use
  Company Number: 2013035876

PATIENT
  Sex: Male
  Weight: 49.9 kg

DRUGS (13)
  1. HIZENTRA [Suspect]
     Dosage: OVER 1-3 HOURS SUBCUTANEOUS
     Route: 050
  2. DIPHENHYDRAMINE (DIPHENHYDRAMINE) [Concomitant]
  3. EPI PEN (EPINEPHRINE) [Concomitant]
  4. GAMUNEX (IMMUNIGLOBULIN HUMAN NORMAL) [Concomitant]
  5. LMX (LIDOCAINE) [Concomitant]
  6. ZITHROMAX (AZITHROMYCIN) [Concomitant]
  7. CLINDAMYCIN (CLINDAMYCIN) [Concomitant]
  8. PREDNISONE (PREDNISONE) [Concomitant]
  9. VITAMIN D2 (ERGOCALCIFEROL) [Concomitant]
  10. PULMOZYME (DORNASE ALFA) [Concomitant]
  11. RELION VENTOLIN (SALBUTAMOL) [Concomitant]
  12. SODIUM CHLORIDE [Concomitant]
  13. SYMBICORT (BUDESONIDE W/FORMOTEROL FUMURATE) [Concomitant]

REACTIONS (1)
  - Influenza like illness [None]
